FAERS Safety Report 5212956-8 (Version None)
Quarter: 2007Q1

REPORT INFORMATION
  Report Type: 
  Country: None (occurrence: None)
  Receive Date: 20070119
  Receipt Date: 20070111
  Transmission Date: 20070707
  Serious: Yes (Other)
  Sender: FDA-Public Use
  Company Number: PHBS2007JP00970

PATIENT
  Sex: Male

DRUGS (1)
  1. ZOMETA [Suspect]
     Indication: METASTASES TO BONE
     Route: 042

REACTIONS (5)
  - HAEMORRHAGE SUBCUTANEOUS [None]
  - MOUTH HAEMORRHAGE [None]
  - PAIN [None]
  - PYREXIA [None]
  - SOMNOLENCE [None]
